FAERS Safety Report 14897752 (Version 2)
Quarter: 2018Q2

REPORT INFORMATION
  Report Type: Spontaneous
  Country: US (occurrence: US)
  Receive Date: 20180515
  Receipt Date: 20180517
  Transmission Date: 20180711
  Serious: No
  Sender: FDA-Public Use
  Company Number: US-PFIZER INC-2018197286

PATIENT
  Age: 81 Year
  Sex: Female
  Weight: 53 kg

DRUGS (4)
  1. LYRICA [Suspect]
     Active Substance: PREGABALIN
     Indication: PAIN IN EXTREMITY
     Dosage: 75 MG, 1X/DAY
     Route: 048
     Dates: start: 20180509, end: 20180509
  2. PREDNISONE. [Concomitant]
     Active Substance: PREDNISONE
     Indication: INFLAMMATION
     Dosage: 24 MG, DAILY (TOOK 6 TABLETS BY MOUTH)
     Route: 048
     Dates: start: 20180504
  3. LYRICA [Suspect]
     Active Substance: PREGABALIN
     Indication: BACK PAIN
  4. PREDNISONE. [Concomitant]
     Active Substance: PREDNISONE
     Dosage: SIX 10MG TABLETS BY MOUTH
     Route: 048

REACTIONS (2)
  - Dizziness [Recovered/Resolved]
  - Pharyngeal oedema [Recovering/Resolving]

NARRATIVE: CASE EVENT DATE: 20180509
